FAERS Safety Report 21499552 (Version 4)
Quarter: 2022Q4

REPORT INFORMATION
  Report Type: Report from Study
  Country: IN (occurrence: IN)
  Receive Date: 20221024
  Receipt Date: 20221209
  Transmission Date: 20230113
  Serious: Yes (Hospitalization)
  Sender: FDA-Public Use
  Company Number: IN-BRISTOL-MYERS SQUIBB COMPANY-2022-124149

PATIENT
  Age: 52 Year
  Sex: Male
  Weight: 75 kg

DRUGS (3)
  1. IPILIMUMAB [Suspect]
     Active Substance: IPILIMUMAB
     Indication: Renal cell carcinoma
     Route: 065
     Dates: start: 20220727, end: 20220727
  2. NEBILONG [Concomitant]
     Indication: Product used for unknown indication
     Route: 048
     Dates: start: 20220428, end: 20221015
  3. NULONG-TRIO [Concomitant]
     Indication: Product used for unknown indication
     Dosage: 01
     Route: 048
     Dates: start: 20220428, end: 20221015

REACTIONS (1)
  - Stomatitis [Recovered/Resolved]

NARRATIVE: CASE EVENT DATE: 20221015
